FAERS Safety Report 8267963-8 (Version None)
Quarter: 2012Q2

REPORT INFORMATION
  Report Type: 
  Country: None (occurrence: None)
  Receive Date: 20120409
  Receipt Date: 20120330
  Transmission Date: 20120825
  Serious: Yes (Hospitalization)
  Sender: FDA-Public Use
  Company Number: US-BAYER-2011-098682

PATIENT
  Age: 25 Year
  Sex: Female
  Weight: 61.678 kg

DRUGS (7)
  1. YASMIN [Suspect]
     Dosage: UNK
     Dates: start: 20040801, end: 20091001
  2. YASMIN [Suspect]
     Dosage: UNK
     Dates: start: 20040801, end: 20091001
  3. DROSPIRENONE AND ETHINYL ESTRADIOL [Suspect]
     Indication: CONTRACEPTION
     Dosage: UNK
     Dates: start: 20040801, end: 20091001
  4. YASMIN [Suspect]
     Indication: CONTRACEPTION
     Dosage: UNK
     Dates: start: 20040801, end: 20091001
  5. YASMIN [Suspect]
     Dosage: UNK
     Dates: start: 20040801, end: 20091001
  6. PROAIR HFA [Concomitant]
     Dosage: UNK
     Dates: start: 20050101
  7. CLARINEX [Concomitant]
     Dosage: UNK
     Dates: start: 20080101

REACTIONS (4)
  - CHOLECYSTITIS ACUTE [None]
  - INJURY [None]
  - GALLBLADDER INJURY [None]
  - PAIN [None]
